FAERS Safety Report 8032782-4 (Version None)
Quarter: 2012Q1

REPORT INFORMATION
  Report Type: 
  Country: None (occurrence: None)
  Receive Date: 20120110
  Receipt Date: 20120106
  Transmission Date: 20120608
  Serious: Yes (Other)
  Sender: FDA-Public Use
  Company Number: GB-PFIZER INC-2012005461

PATIENT
  Age: 64 Year
  Sex: Male
  Weight: 112 kg

DRUGS (7)
  1. DOXAZOSIN MESYLATE [Suspect]
     Indication: HYPERTENSION
     Dosage: 4 MG, UNK
     Route: 048
  2. LANSOPRAZOLE [Concomitant]
     Dosage: 15 MG, 1X/DAY
  3. ACETYLSALICYLIC ACID [Concomitant]
     Dosage: 75 MG, 1X/DAY
  4. IRBESARTAN [Concomitant]
     Dosage: 300 MG, UNK
  5. SILDENAFIL [Concomitant]
     Dosage: 50 MG, UNK
  6. EZETIMIBE [Concomitant]
     Dosage: 10 MG, 1X/DAY
  7. ADIZEM-XL [Concomitant]
     Dosage: 300 MG, 1X/DAY

REACTIONS (1)
  - HYPOGLYCAEMIA [None]
